FAERS Safety Report 19507672 (Version 2)
Quarter: 2021Q3

REPORT INFORMATION
  Report Type: Spontaneous
  Country: US (occurrence: US)
  Receive Date: 20210708
  Receipt Date: 20210820
  Transmission Date: 20211014
  Serious: No
  Sender: FDA-Public Use
  Company Number: US-PFIZER INC-2021682177

PATIENT
  Age: 8 Year
  Sex: Male
  Weight: 19.05 kg

DRUGS (2)
  1. GENOTROPIN [Suspect]
     Active Substance: SOMATROPIN
     Indication: GROWTH HORMONE DEFICIENCY
     Dosage: 0.8MG ONE DAY, THEN THE NEXT DAY IS 1MG
     Route: 058
  2. GENOTROPIN [Suspect]
     Active Substance: SOMATROPIN
     Dosage: 0.8MG ONE DAY, THEN THE NEXT DAY IS 1MG
     Route: 058

REACTIONS (4)
  - Off label use [Unknown]
  - Device physical property issue [Not Recovered/Not Resolved]
  - Device information output issue [Not Recovered/Not Resolved]
  - Drug dose omission by device [Unknown]
